FAERS Safety Report 16832458 (Version 1)
Quarter: 2019Q4

REPORT INFORMATION
  Report Type: Spontaneous
  Country: US (occurrence: US)
  Receive Date: 20190920
  Receipt Date: 20190920
  Transmission Date: 20200122
  Serious: Yes (Disabling)
  Sender: FDA-Public Use
  Company Number: None

PATIENT
  Age: 62 Year
  Sex: Male
  Weight: 87.75 kg

DRUGS (4)
  1. CLONAZEPAM. [Concomitant]
     Active Substance: CLONAZEPAM
  2. VITAMIN A [Concomitant]
     Active Substance: VITAMIN A
  3. YERVOY [Suspect]
     Active Substance: IPILIMUMAB
     Indication: MELANOMA RECURRENT
     Dosage: ?          QUANTITY:1 INJECTION(S);OTHER FREQUENCY:EVERY 3 MONTHS;OTHER ROUTE:INFUSED INTO VENOUS CATHETHER?
     Dates: start: 20171001, end: 20190401
  4. MULTIVITAMIN [Concomitant]
     Active Substance: VITAMINS

REACTIONS (9)
  - Viral infection [None]
  - Headache [None]
  - Diplopia [None]
  - Fall [None]
  - Vision blurred [None]
  - Skin laceration [None]
  - Rash [None]
  - Pineal gland cyst [None]
  - Dry eye [None]

NARRATIVE: CASE EVENT DATE: 20190117
